FAERS Safety Report 16380133 (Version 1)
Quarter: 2019Q2

REPORT INFORMATION
  Report Type: Spontaneous
  Country: DE (occurrence: DE)
  Receive Date: 20190601
  Receipt Date: 20190601
  Transmission Date: 20190711
  Serious: Yes (Other)
  Sender: FDA-Public Use
  Company Number: DE-AUROBINDO-AUR-APL-2018-039386

PATIENT
  Sex: Female
  Weight: 123 kg

DRUGS (8)
  1. KISQALI [Suspect]
     Active Substance: RIBOCICLIB
     Indication: BREAST CANCER
     Dosage: 600 MILLIGRAM (QMO (EVERY 21 DAYS))
     Route: 048
     Dates: start: 20180704, end: 20180724
  2. KISQALI [Suspect]
     Active Substance: RIBOCICLIB
     Dosage: 600 MG (EVERY 21 DAYS)
     Route: 048
     Dates: start: 20180926, end: 20181016
  3. KISQALI [Suspect]
     Active Substance: RIBOCICLIB
     Dosage: 600 MG, (21 DAYS INTAKE, 7 DAYS PAUSE)
     Route: 048
     Dates: start: 20181219, end: 20190427
  4. KISQALI [Suspect]
     Active Substance: RIBOCICLIB
     Dosage: 600 MG (EVERY 21 DAYS)
     Route: 048
     Dates: start: 20180801, end: 20180821
  5. KISQALI [Suspect]
     Active Substance: RIBOCICLIB
     Dosage: 600 MG (EVERY 21 DAYS)
     Route: 048
     Dates: start: 20180829, end: 20180918
  6. LETROZOLE. [Suspect]
     Active Substance: LETROZOLE
     Indication: BREAST CANCER
     Dosage: 2.5 MILLIGRAM, ONCE A DAY (QD)
     Route: 048
     Dates: start: 20180614
  7. KISQALI [Suspect]
     Active Substance: RIBOCICLIB
     Dosage: 600 MG (EVERY 21 DAYS)
     Route: 048
     Dates: start: 20181024, end: 20181113
  8. KISQALI [Suspect]
     Active Substance: RIBOCICLIB
     Dosage: 600 MG(EVERY 21 DAYS)
     Route: 048
     Dates: start: 20181121, end: 20181211

REACTIONS (9)
  - Flank pain [Unknown]
  - Diarrhoea [Recovered/Resolved]
  - Dyspnoea [Not Recovered/Not Resolved]
  - Fatigue [Not Recovered/Not Resolved]
  - Musculoskeletal chest pain [Not Recovered/Not Resolved]
  - Bone pain [Not Recovered/Not Resolved]
  - Metastases to bone [Recovered/Resolved]
  - Malignant neoplasm progression [Recovered/Resolved]
  - Rash [Recovered/Resolved]

NARRATIVE: CASE EVENT DATE: 20180630
